FAERS Safety Report 6911903 (Version 5)
Quarter: 2014Q1

REPORT INFORMATION
  Report Type: Report from Study
  Country: JP (occurrence: JP)
  Receive Date: 20090218
  Receipt Date: 20140319
  Transmission Date: 20141002
  Serious: Yes (Hospitalization, Other)
  Sender: FDA-Public Use
  Company Number: JP-JNJFOC-20090202652

PATIENT
  Age: 40 Year
  Sex: Male
  Weight: 62 kg

DRUGS (7)
  1. REMICADE [Suspect]
     Indication: BEHCET^S SYNDROME
     Route: 042
     Dates: start: 20081016
  2. REMICADE [Suspect]
     Indication: BEHCET^S SYNDROME
     Dosage: 3RD INFUSION
     Route: 042
     Dates: start: 20081127
  3. REMICADE [Suspect]
     Indication: BEHCET^S SYNDROME
     Route: 042
     Dates: start: 20081030
  4. COLCHICINE [Concomitant]
     Indication: BEHCET^S SYNDROME
     Route: 048
     Dates: start: 20080416, end: 20081015
  5. BETAMETHASONE SODIUM PHOSPHATE [Concomitant]
     Indication: BEHCET^S SYNDROME
     Dosage: 6 TIMES A DAY TO LEFT EYE
     Route: 031
     Dates: start: 20080416
  6. STEROIDS NOS [Concomitant]
     Route: 031
  7. RINDERON [Concomitant]
     Route: 031

REACTIONS (6)
  - Disseminated tuberculosis [Recovering/Resolving]
  - Gastric ulcer [Recovering/Resolving]
  - Anaemia [Unknown]
  - Thrombocytopenia [Recovering/Resolving]
  - Hepatic function abnormal [Recovered/Resolved]
  - Pleural effusion [Unknown]
